FAERS Safety Report 20788636 (Version 1)
Quarter: 2022Q2

REPORT INFORMATION
  Report Type: Spontaneous
  Country: US (occurrence: US)
  Receive Date: 20220505
  Receipt Date: 20220505
  Transmission Date: 20220721
  Serious: No
  Sender: FDA-Public Use
  Company Number: US-009507513-2204USA002563

PATIENT
  Age: 50 Year
  Sex: Male

DRUGS (3)
  1. INTRON A [Suspect]
     Active Substance: INTERFERON ALFA-2B
     Indication: Uveitis
     Dosage: 6 MILLION INTERNATIONAL UNIT, ONCE DAILY
     Route: 058
     Dates: start: 20130228
  2. INTRON A [Suspect]
     Active Substance: INTERFERON ALFA-2B
     Indication: Macular oedema
     Dosage: 1.8 MILLION INTERNATIONAL UNIT, TWICE WEEKLY
     Route: 058
  3. LEVOTHYROXINE [Concomitant]
     Active Substance: LEVOTHYROXINE
     Dosage: UNK

REACTIONS (13)
  - Musculoskeletal stiffness [Unknown]
  - Gait inability [Recovered/Resolved]
  - Joint injury [Unknown]
  - Fall [Recovered/Resolved]
  - Benign prostatic hyperplasia [Unknown]
  - Lung disorder [Unknown]
  - Wheezing [Unknown]
  - Pain [Unknown]
  - Malaise [Unknown]
  - Myalgia [Unknown]
  - Fatigue [Unknown]
  - Product use in unapproved indication [Unknown]
  - Product prescribing issue [Unknown]

NARRATIVE: CASE EVENT DATE: 20130228
